FAERS Safety Report 6583403-9 (Version None)
Quarter: 2010Q1

REPORT INFORMATION
  Report Type: 
  Country: None (occurrence: None)
  Receive Date: 20100212
  Receipt Date: 20100212
  Transmission Date: 20100710
  Serious: No
  Sender: FDA-Public Use
  Company Number: None

PATIENT
  Age: 46 Year
  Sex: Male
  Weight: 96.6 kg

DRUGS (1)
  1. DISULFIRAM [Suspect]
     Indication: ALCOHOL ABUSE
     Dosage: 250 MG PM PO
     Route: 048
     Dates: start: 20090710, end: 20090916

REACTIONS (2)
  - ALANINE AMINOTRANSFERASE INCREASED [None]
  - ASPARTATE AMINOTRANSFERASE INCREASED [None]
